FAERS Safety Report 16573624 (Version 2)
Quarter: 2019Q3

REPORT INFORMATION
  Report Type: Spontaneous
  Country: FR (occurrence: FR)
  Receive Date: 20190715
  Receipt Date: 20190918
  Transmission Date: 20191004
  Serious: Yes (Hospitalization, Other)
  Sender: FDA-Public Use
  Company Number: FR-AMGEN-FRASP2019110181

PATIENT
  Age: 86 Year
  Sex: Female
  Weight: 55 kg

DRUGS (6)
  1. AMLOR [Concomitant]
     Active Substance: AMLODIPINE BESYLATE
     Dosage: 5 MILLIGRAM, QD
     Route: 048
  2. COAPROVEL [Concomitant]
     Active Substance: HYDROCHLOROTHIAZIDE\IRBESARTAN
     Dosage: 1 DOSAGE FORM, QD (300MG/12.5 MG)
     Route: 048
  3. NEULASTA [Suspect]
     Active Substance: PEGFILGRASTIM
     Indication: PRODUCT USED FOR UNKNOWN INDICATION
     Dosage: 6 MILLIGRAM, CYCLICAL
     Route: 058
     Dates: start: 20190104, end: 20190404
  4. NOVORAPID [Concomitant]
     Active Substance: INSULIN ASPART
     Dosage: 25.8 INTERNATIONAL UNIT, QD
     Route: 058
  5. LANTUS [Concomitant]
     Active Substance: INSULIN GLARGINE
     Dosage: 36 INTERNATIONAL UNIT, QD
     Route: 058
  6. PLAVIX [Concomitant]
     Active Substance: CLOPIDOGREL BISULFATE
     Dosage: 75 MILLIGRAM, QD
     Route: 048

REACTIONS (2)
  - Pleurisy [Recovered/Resolved]
  - Hyperleukocytosis [Recovered/Resolved]

NARRATIVE: CASE EVENT DATE: 20190405
